FAERS Safety Report 17157271 (Version 1)
Quarter: 2019Q4

REPORT INFORMATION
  Report Type: Spontaneous
  Country: DE (occurrence: DE)
  Receive Date: 20191216
  Receipt Date: 20191216
  Transmission Date: 20200122
  Serious: Yes (Life-Threatening, Hospitalization, Other)
  Sender: FDA-Public Use
  Company Number: DE-ACCORD-165543

PATIENT
  Age: 60 Year
  Sex: Male
  Weight: 83 kg

DRUGS (4)
  1. FLUOROURACIL. [Concomitant]
     Active Substance: FLUOROURACIL
     Route: 042
  2. FOLIC ACID. [Concomitant]
     Active Substance: FOLIC ACID
  3. FLUOROURACIL. [Concomitant]
     Active Substance: FLUOROURACIL
     Route: 040
  4. IRINOTECAN [Suspect]
     Active Substance: IRINOTECAN
     Indication: RECTAL CANCER
     Dates: start: 20190828

REACTIONS (2)
  - Ileus [Unknown]
  - Necrotising colitis [Unknown]

NARRATIVE: CASE EVENT DATE: 20190909
